FAERS Safety Report 9330034 (Version 1)
Quarter: 2013Q2

REPORT INFORMATION
  Report Type: Spontaneous
  Country: US (occurrence: US)
  Receive Date: 20130604
  Receipt Date: 20130604
  Transmission Date: 20140414
  Serious: No
  Sender: FDA-Public Use
  Company Number: US-SANOFI-AVENTIS-2012SA057432

PATIENT
  Age: 49 Year
  Sex: Male
  Weight: 93 kg

DRUGS (1)
  1. LANTUS [Suspect]
     Indication: TYPE 2 DIABETES MELLITUS
     Dosage: DOSE IS REPORTED AS 43-45 UNITS
     Route: 058
     Dates: start: 2005, end: 20120731

REACTIONS (3)
  - Weight decreased [Unknown]
  - Visual impairment [Unknown]
  - Drug dose omission [Unknown]
